FAERS Safety Report 4638024-1 (Version None)
Quarter: 2005Q2

REPORT INFORMATION
  Report Type: 
  Country: None (occurrence: None)
  Receive Date: 20050415
  Receipt Date: 20050404
  Transmission Date: 20051028
  Serious: Yes (Death, Other)
  Sender: FDA-Public Use
  Company Number: 2005056522

PATIENT
  Age: 68 Year
  Sex: Male
  Weight: 70 kg

DRUGS (8)
  1. LINEZOLID SOLUTION, STERILE (LINEZOLID) [Suspect]
     Indication: ILL-DEFINED DISORDER
     Dosage: 1200 MG (600 MG, BID INTERVAL: Q 12 H), INTRAVENOUS
     Route: 042
     Dates: start: 20050331, end: 20050404
  2. RANITIDINE [Concomitant]
  3. DIPYRONE TAB [Concomitant]
  4. ALPRAZOLAM [Concomitant]
  5. HEPARIN [Concomitant]
  6. OCTREOTIDE ACETATE [Concomitant]
  7. METOCLOPRAMINE (METOCLOPRAMINE) [Concomitant]
  8. LOPERAMIDE [Concomitant]

REACTIONS (13)
  - ARTHRALGIA [None]
  - BRADYCARDIA [None]
  - CARDIAC ARREST [None]
  - CHILLS [None]
  - DRUG HYPERSENSITIVITY [None]
  - HYPOTENSION [None]
  - HYPOXIA [None]
  - INFUSION RELATED REACTION [None]
  - LOSS OF CONSCIOUSNESS [None]
  - OXYGEN SATURATION DECREASED [None]
  - RESPIRATORY DISORDER [None]
  - SEPTIC SHOCK [None]
  - TACHYCARDIA [None]
